FAERS Safety Report 8016070-8 (Version None)
Quarter: 2011Q4

REPORT INFORMATION
  Report Type: 
  Country: None (occurrence: None)
  Receive Date: 20111230
  Receipt Date: 20111220
  Transmission Date: 20120403
  Serious: Yes (Other)
  Sender: FDA-Public Use
  Company Number: US-ABBOTT-11P-163-0886042-00

PATIENT
  Age: 66 Year
  Sex: Male

DRUGS (4)
  1. BENICAR [Concomitant]
     Indication: BLOOD PRESSURE
  2. METOPROLOL [Concomitant]
     Indication: BLOOD PRESSURE
  3. HUMIRA [Suspect]
     Indication: PSORIASIS
     Dates: start: 20110601
  4. ASPIRIN [Concomitant]
     Indication: PRODUCT USED FOR UNKNOWN INDICATION

REACTIONS (6)
  - FATIGUE [None]
  - PSORIASIS [None]
  - DIZZINESS [None]
  - FAECES DISCOLOURED [None]
  - GASTRIC HAEMORRHAGE [None]
  - RED BLOOD CELL COUNT DECREASED [None]
